FAERS Safety Report 11414387 (Version 3)
Quarter: 2015Q4

REPORT INFORMATION
  Report Type: Spontaneous
  Country: US (occurrence: US)
  Receive Date: 20150824
  Receipt Date: 20151013
  Transmission Date: 20160304
  Serious: No
  Sender: FDA-Public Use
  Company Number: US-009507513-1508USA010222

PATIENT
  Age: 24 Year
  Sex: Female
  Weight: 152.83 kg

DRUGS (9)
  1. IBUPROFEN. [Concomitant]
     Active Substance: IBUPROFEN
     Dosage: 1 TABLET, EVERY DAY WITH FOOD.BY ORAL ROUTE 3 TIMES
     Route: 048
     Dates: start: 20150519
  2. NEXPLANON [Suspect]
     Active Substance: ETONOGESTREL
     Indication: CONTRACEPTION
     Dosage: UNK
     Route: 059
     Dates: start: 20150908
  3. PROTONIX [Concomitant]
     Active Substance: PANTOPRAZOLE SODIUM
     Dosage: 1 TABLET EVERY 2 DAYS
     Route: 048
     Dates: start: 20150310
  4. NEXPLANON [Suspect]
     Active Substance: ETONOGESTREL
     Dosage: UNK
     Route: 059
     Dates: start: 20150616, end: 20150908
  5. AMBIEN [Concomitant]
     Active Substance: ZOLPIDEM TARTRATE
     Dosage: 1 TABLET EVERY DAY AT BED TIME.
     Route: 048
     Dates: start: 20150223
  6. NORCO [Concomitant]
     Active Substance: ACETAMINOPHEN\HYDROCODONE BITARTRATE
     Indication: PAIN
     Dosage: 1 TABLET EVERY 4-6 HOURS AS NEEDED
     Route: 048
     Dates: start: 20141223
  7. ACETAMINOPHEN (+) TRAMADOL HYDROCHLORIDE [Concomitant]
     Active Substance: ACETAMINOPHEN\TRAMADOL HYDROCHLORIDE
     Indication: PAIN
     Dosage: EVERY 3 HOURS AS NEEDED FOR PAIN
     Dates: start: 20141223, end: 20150616
  8. LITHIUM CARBONATE. [Concomitant]
     Active Substance: LITHIUM CARBONATE
     Dosage: 1 TABLET EVERY DAY AT NIGHT
     Route: 048
     Dates: start: 20150519
  9. ZOFRAN [Concomitant]
     Active Substance: ONDANSETRON HYDROCHLORIDE
     Dosage: 1 DF, Q8H
     Route: 048
     Dates: start: 20150420

REACTIONS (2)
  - Device breakage [Recovered/Resolved]
  - Discomfort [Recovered/Resolved]

NARRATIVE: CASE EVENT DATE: 20150821
